FAERS Safety Report 8030227-1 (Version None)
Quarter: 2012Q1

REPORT INFORMATION
  Report Type: 
  Country: None (occurrence: None)
  Receive Date: 20120109
  Receipt Date: 20120104
  Transmission Date: 20120608
  Serious: No
  Sender: FDA-Public Use
  Company Number: PHEH2011US008773

PATIENT
  Sex: Female
  Weight: 79.365 kg

DRUGS (1)
  1. GILENYA [Suspect]
     Indication: MULTIPLE SCLEROSIS
     Dosage: 0.5 MG, QD
     Route: 048
     Dates: start: 20111102, end: 20111108

REACTIONS (6)
  - DRUG ADMINISTRATION ERROR [None]
  - DYSPNOEA [None]
  - APPETITE DISORDER [None]
  - PALPITATIONS [None]
  - BACK PAIN [None]
  - PERSONALITY DISORDER [None]
